FAERS Safety Report 4620910-X (Version None)
Quarter: 2005Q1

REPORT INFORMATION
  Report Type: 
  Country: None (occurrence: None)
  Receive Date: 20050325
  Receipt Date: 20050315
  Transmission Date: 20050727
  Serious: No
  Sender: FDA-Public Use
  Company Number: 2005-126489-NL

PATIENT
  Age: 34 Year
  Sex: Female

DRUGS (2)
  1. FOLLITROPIN BETA [Suspect]
     Indication: IN VITRO FERTILISATION
     Route: 058
     Dates: start: 20041112, end: 20041121
  2. LEUPROLIDE ACETATE [Concomitant]

REACTIONS (2)
  - HEPATITIS TOXIC [None]
  - INJECTION SITE HYPERSENSITIVITY [None]
